FAERS Safety Report 7216234-7 (Version None)
Quarter: 2011Q1

REPORT INFORMATION
  Report Type: 
  Country: None (occurrence: None)
  Receive Date: 20110107
  Receipt Date: 20110105
  Transmission Date: 20110831
  Serious: Yes (Other)
  Sender: FDA-Public Use
  Company Number: US-JNJFOC-20110101261

PATIENT
  Age: 101 Year
  Sex: Female
  Weight: 54.43 kg

DRUGS (6)
  1. EXTRA STRENGTH TYLENOL [Suspect]
     Dosage: IN AFTERNOON
     Route: 050
  2. DIGOXIN [Concomitant]
     Indication: CARDIAC DISORDER
  3. EXTRA STRENGTH TYLENOL [Suspect]
     Indication: MUSCULOSKELETAL PAIN
     Dosage: 1000MG IN EVENING
     Route: 050
  4. ANTIHYPERTENSIVE [Concomitant]
     Indication: BLOOD PRESSURE
  5. EXTRA STRENGTH TYLENOL [Suspect]
     Dosage: IN AFTERNOON
     Route: 050
  6. EXTRA STRENGTH TYLENOL [Suspect]
     Indication: ARTHRALGIA
     Dosage: 1000MG IN EVENING
     Route: 050

REACTIONS (4)
  - INCOHERENT [None]
  - HYPOTENSION [None]
  - PYREXIA [None]
  - DYSURIA [None]
